FAERS Safety Report 5867256-X (Version None)
Quarter: 2008Q3

REPORT INFORMATION
  Report Type: 
  Country: None (occurrence: None)
  Receive Date: 20080828
  Receipt Date: 20080828
  Transmission Date: 20090109
  Serious: Yes (Hospitalization)
  Sender: FDA-Public Use
  Company Number: None

PATIENT
  Sex: Male
  Weight: 132.3 kg

DRUGS (1)
  1. DL-ALPHA-LIPOIC ACID [Suspect]

REACTIONS (1)
  - RECTAL ABSCESS [None]
